FAERS Safety Report 5574227-X (Version None)
Quarter: 2007Q4

REPORT INFORMATION
  Report Type: 
  Country: None (occurrence: None)
  Receive Date: 20071227
  Receipt Date: 20071218
  Transmission Date: 20080405
  Serious: Yes (Life-Threatening, Hospitalization)
  Sender: FDA-Public Use
  Company Number: FR-BRISTOL-MYERS SQUIBB COMPANY-14022925

PATIENT
  Age: 83 Year
  Sex: Female

DRUGS (15)
  1. ENDOXAN [Suspect]
     Dosage: DOSE:FIRST ON 01-AUG-2007, SECOND ON 23-AUG-2007, THIRD ON 19-SEP-2007 + FOURTH ON 03-OCT-2007
     Route: 042
     Dates: start: 20070801
  2. MABTHERA [Suspect]
     Dosage: DOSE:FIRST ON 01-AUG-2007, SECOND ON 23-AUG-2007, THIRD ON 19-SEP-2007 + FOURTH ON 03-OCT-2007
     Route: 042
     Dates: start: 20070801
  3. CAELYX [Suspect]
     Dosage: DOSE:FIRST ON 01-AUG-2007, SECOND ON 23-AUG-2007, THIRD ON 19-SEP-2007 + FOURTH ON 03-OCT-2007
     Route: 042
     Dates: start: 20070801
  4. ELDISINE [Suspect]
     Dosage: DOSE:FIRST ON 19-SEP-2007 + SECOND ON 03-OCT-2007
     Route: 042
     Dates: start: 20070919
  5. ONCOVIN [Suspect]
     Dosage: DOSE:FIRST ON 01-AUG-2007 + SECOND ON 23-AUG-2007.
     Route: 042
     Dates: start: 20070801, end: 20070919
  6. LENOGRASTIM [Suspect]
     Route: 058
     Dates: start: 20070801, end: 20071011
  7. ZOPHREN [Suspect]
     Route: 042
     Dates: start: 20070801
  8. SOLUPRED [Concomitant]
     Route: 048
     Dates: start: 20070701
  9. POLARAMINE [Concomitant]
  10. DAFALGAN [Concomitant]
  11. TRIMETAZIDINE [Concomitant]
  12. POTASSIUM CHLORIDE [Concomitant]
  13. MOPRAL [Concomitant]
  14. ACETYLSALICYLIC ACID SRT [Concomitant]
  15. PRIMPERAN INJ [Concomitant]

REACTIONS (4)
  - CHILLS [None]
  - INTERSTITIAL LUNG DISEASE [None]
  - PARAESTHESIA [None]
  - PYREXIA [None]
